FAERS Safety Report 10074155 (Version 1)
Quarter: 2014Q2

REPORT INFORMATION
  Report Type: Spontaneous
  Country: US (occurrence: US)
  Receive Date: 20140411
  Receipt Date: 20140411
  Transmission Date: 20141212
  Serious: No
  Sender: FDA-Public Use
  Company Number: US-SA-2014SA025555

PATIENT
  Sex: 0

DRUGS (1)
  1. ALLEGRA D [Suspect]
     Dosage: TAKEN BEFORE BED AT NIGHT
     Route: 048
     Dates: start: 20140224

REACTIONS (3)
  - Insomnia [Unknown]
  - Restlessness [Unknown]
  - Anxiety [Unknown]
